FAERS Safety Report 4867443-3 (Version None)
Quarter: 2005Q4

REPORT INFORMATION
  Report Type: 
  Country: None (occurrence: None)
  Receive Date: 20051228
  Receipt Date: 20050706
  Transmission Date: 20060501
  Serious: Yes (Hospitalization, Disabling)
  Sender: FDA-Public Use
  Company Number: US-MERCK-0507USA01029

PATIENT
  Age: 46 Year
  Sex: Male
  Weight: 90 kg

DRUGS (4)
  1. VIOXX [Suspect]
     Indication: ARTHRITIS
     Route: 048
     Dates: start: 20011026, end: 20020901
  2. VIOXX [Suspect]
     Indication: PAIN
     Route: 048
     Dates: start: 20011026, end: 20020901
  3. ALBUTEROL [Concomitant]
     Route: 065
  4. ASPIRIN [Concomitant]
     Route: 065
     Dates: start: 20020601

REACTIONS (8)
  - ANGINA PECTORIS [None]
  - ARTERIOSCLEROSIS [None]
  - BLOOD CHOLESTEROL INCREASED [None]
  - BLOOD TRIGLYCERIDES INCREASED [None]
  - CARDIAC DISORDER [None]
  - HYPERTENSION [None]
  - MUSCLE SPASMS [None]
  - MYOCARDIAL INFARCTION [None]
